FAERS Safety Report 17198777 (Version 1)
Quarter: 2019Q4

REPORT INFORMATION
  Report Type: Spontaneous
  Country: US (occurrence: US)
  Receive Date: 20191203
  Receipt Date: 20191203
  Transmission Date: 20200122
  Serious: Yes (Life-Threatening, Other)
  Sender: FDA-Public Use
  Company Number: None

PATIENT
  Age: 77 Year
  Sex: Female
  Weight: 113.4 kg

DRUGS (1)
  1. BRILINTA [Suspect]
     Active Substance: TICAGRELOR
     Indication: THROMBOSIS PROPHYLAXIS
     Dosage: ?          OTHER FREQUENCY:TWICE;?
     Dates: start: 20191028, end: 20191029

REACTIONS (8)
  - Epistaxis [None]
  - Chromaturia [None]
  - Contusion [None]
  - Hyperventilation [None]
  - Dyspnoea [None]
  - Presyncope [None]
  - Atrioventricular block first degree [None]
  - Haemorrhage [None]

NARRATIVE: CASE EVENT DATE: 20191028
